FAERS Safety Report 26075690 (Version 1)
Quarter: 2025Q4

REPORT INFORMATION
  Report Type: Spontaneous
  Country: US (occurrence: US)
  Receive Date: 20251121
  Receipt Date: 20251121
  Transmission Date: 20260117
  Serious: Yes (Other)
  Sender: CURRAX PHARMACEUTICALS
  Company Number: US-CURRAX PHARMACEUTICALS LLC-US-2025CUR002274

PATIENT
  Age: 32 Year
  Sex: Female

DRUGS (2)
  1. SUMATRIPTAN SUCCINATE [Suspect]
     Active Substance: SUMATRIPTAN SUCCINATE
     Indication: Headache
     Dosage: UNKNOWN DOSE AND FREQUENCY
     Route: 065
  2. BOTULINUM TOXIN NOS [Concomitant]
     Active Substance: BOTULINUM TOXIN NOS
     Indication: Product used for unknown indication
     Dosage: UNK

REACTIONS (5)
  - Central nervous system vasculitis [Unknown]
  - Susac^s syndrome [Unknown]
  - Condition aggravated [Unknown]
  - Cerebral ischaemia [Unknown]
  - Product prescribing error [Unknown]
